FAERS Safety Report 5726227-4 (Version None)
Quarter: 2008Q2

REPORT INFORMATION
  Report Type: 
  Country: None (occurrence: None)
  Receive Date: 20080430
  Receipt Date: 20080424
  Transmission Date: 20081010
  Serious: Yes (Other)
  Sender: FDA-Public Use
  Company Number: S08-USA-01516-01

PATIENT
  Age: 13 Year
  Sex: Male

DRUGS (7)
  1. LEXAPRO [Suspect]
     Indication: DEPRESSION
     Dosage: 10 MG QD PO
     Route: 048
     Dates: start: 20080208, end: 20080418
  2. LEXAPRO [Suspect]
     Indication: SUICIDAL IDEATION
     Dosage: 10 MG QD PO
     Route: 048
     Dates: start: 20080208, end: 20080418
  3. LEXAPRO [Suspect]
     Indication: DEPRESSION
     Dosage: 5 MG QD PO
     Route: 048
     Dates: start: 20080419
  4. LEXAPRO [Suspect]
     Indication: SUICIDAL IDEATION
     Dosage: 5 MG QD PO
     Route: 048
     Dates: start: 20080419
  5. LEXAPRO [Suspect]
     Indication: DEPRESSION
     Dosage: 5 MG QD PO
     Route: 048
     Dates: start: 20080125, end: 20080207
  6. LEXAPRO [Suspect]
     Indication: SUICIDAL IDEATION
     Dosage: 5 MG QD PO
     Route: 048
     Dates: start: 20080125, end: 20080207
  7. NASACORT [Concomitant]

REACTIONS (2)
  - CONVULSION [None]
  - STARING [None]
